FAERS Safety Report 7429896-6 (Version None)
Quarter: 2011Q2

REPORT INFORMATION
  Report Type: 
  Country: None (occurrence: None)
  Receive Date: 20110421
  Receipt Date: 20110413
  Transmission Date: 20111010
  Serious: Yes (Death, Other)
  Sender: FDA-Public Use
  Company Number: US-GENZYME-CERZ-1001307

PATIENT
  Sex: Female
  Weight: 57.5 kg

DRUGS (13)
  1. COMPAZINE [Concomitant]
     Indication: NAUSEA
     Route: 048
  2. KLONOPIN [Concomitant]
     Indication: PRODUCT USED FOR UNKNOWN INDICATION
     Route: 065
  3. COLACE [Concomitant]
     Indication: PRODUCT USED FOR UNKNOWN INDICATION
     Route: 065
  4. SENNA [Concomitant]
     Indication: PRODUCT USED FOR UNKNOWN INDICATION
     Route: 065
  5. SYNTHROID [Concomitant]
     Indication: PRODUCT USED FOR UNKNOWN INDICATION
     Route: 065
  6. NEXIUM [Concomitant]
     Indication: GASTROOESOPHAGEAL REFLUX DISEASE
     Route: 065
  7. EFFEXOR [Concomitant]
     Indication: PRODUCT USED FOR UNKNOWN INDICATION
     Route: 065
  8. CEREZYME [Suspect]
     Dosage: 53 U/KG, Q2W
  9. AMOXICILLIN [Concomitant]
     Indication: SEPSIS
     Dosage: UNK
     Route: 048
  10. PROCRIT [Concomitant]
     Indication: ANAEMIA
     Route: 065
  11. CEREZYME [Suspect]
     Indication: GAUCHER'S DISEASE
     Dosage: 60 U/KG, Q2W
     Route: 042
     Dates: start: 19940814
  12. FLORINEF [Concomitant]
     Indication: PRODUCT USED FOR UNKNOWN INDICATION
     Dosage: UNK
     Route: 065
  13. PROPRANOLOL [Concomitant]
     Indication: PRODUCT USED FOR UNKNOWN INDICATION
     Route: 065

REACTIONS (2)
  - EOSINOPHILIA [None]
  - PANCREATIC CARCINOMA [None]
